FAERS Safety Report 6967627-4 (Version None)
Quarter: 2010Q3

REPORT INFORMATION
  Report Type: 
  Country: None (occurrence: None)
  Receive Date: 20100907
  Receipt Date: 20100824
  Transmission Date: 20110219
  Serious: Yes (Other)
  Sender: FDA-Public Use
  Company Number: BE-CELGENEUS-013-20785-10082752

PATIENT
  Age: 66 Year
  Sex: Female

DRUGS (3)
  1. THALIDOMIDE [Suspect]
     Route: 048
  2. CYCLOSPORINE [Concomitant]
     Route: 065
  3. AZATHIOPRINE [Concomitant]
     Route: 065

REACTIONS (1)
  - HEART TRANSPLANT REJECTION [None]
